FAERS Safety Report 9794704 (Version 1)
Quarter: 2014Q1

REPORT INFORMATION
  Report Type: Spontaneous
  Country: US (occurrence: US)
  Receive Date: 20140102
  Receipt Date: 20140102
  Transmission Date: 20141002
  Serious: No
  Sender: FDA-Public Use
  Company Number: US-BAXTER-2013BAX015856

PATIENT
  Sex: Female

DRUGS (2)
  1. TISSEEL VH S/D [Suspect]
     Indication: PRODUCT USED FOR UNKNOWN INDICATION
     Route: 065
     Dates: start: 20130423
  2. TISSEEL VH S/D [Suspect]
     Route: 065
     Dates: start: 20130423

REACTIONS (1)
  - Drug ineffective [Recovered/Resolved]
